FAERS Safety Report 26201817 (Version 2)
Quarter: 2025Q4

REPORT INFORMATION
  Report Type: Spontaneous
  Country: US (occurrence: US)
  Receive Date: 20251226
  Receipt Date: 20251226
  Transmission Date: 20260118
  Serious: Yes (Other)
  Sender: ROCHE
  Company Number: US-ROCHE-10000461270

PATIENT
  Sex: Female
  Weight: 58.06 kg

DRUGS (1)
  1. AVASTIN [Suspect]
     Active Substance: BEVACIZUMAB
     Indication: Retinal vein occlusion

REACTIONS (8)
  - Off label use [Unknown]
  - Haemorrhage [Unknown]
  - Reynold^s syndrome [Unknown]
  - Visual impairment [Unknown]
  - Cataract [Unknown]
  - Nephropathy [Unknown]
  - Nasopharyngitis [Not Recovered/Not Resolved]
  - Confusional state [Not Recovered/Not Resolved]
